FAERS Safety Report 21567884 (Version 2)
Quarter: 2022Q4

REPORT INFORMATION
  Report Type: Spontaneous
  Country: UY (occurrence: UY)
  Receive Date: 20221108
  Receipt Date: 20221118
  Transmission Date: 20230112
  Serious: Yes (Hospitalization)
  Sender: FDA-Public Use
  Company Number: UY-PFIZER INC-PV202200099317

PATIENT
  Age: 78 Year
  Sex: Female

DRUGS (2)
  1. IBRANCE [Suspect]
     Active Substance: PALBOCICLIB
     Indication: Breast cancer metastatic
     Dosage: 100 MG, CYCLIC (DAILY 3X1 SCHEME)
     Dates: start: 20170313
  2. FULVESTRANT [Concomitant]
     Active Substance: FULVESTRANT
     Dosage: UNK

REACTIONS (4)
  - Pulmonary congestion [Not Recovered/Not Resolved]
  - Decreased immune responsiveness [Unknown]
  - Lung disorder [Unknown]
  - Infection [Unknown]
